FAERS Safety Report 10265949 (Version 2)
Quarter: 2014Q3

REPORT INFORMATION
  Report Type: Spontaneous
  Country: US (occurrence: US)
  Receive Date: 20140627
  Receipt Date: 20140813
  Transmission Date: 20150326
  Serious: Yes (Other)
  Sender: FDA-Public Use
  Company Number: US-PFIZER INC-2014174956

PATIENT
  Age: 36 Year
  Sex: Female
  Weight: 54.42 kg

DRUGS (2)
  1. LYRICA [Suspect]
     Active Substance: PREGABALIN
     Indication: FIBROMYALGIA
     Dosage: 450 MG, DAILY
     Route: 048
  2. LYRICA [Suspect]
     Active Substance: PREGABALIN
     Dosage: 200 MG, 3X/DAY
     Dates: end: 201405

REACTIONS (7)
  - Suicidal ideation [Unknown]
  - Aphagia [Unknown]
  - Pain [Unknown]
  - Feeling abnormal [Unknown]
  - Weight decreased [Unknown]
  - Convulsion [Unknown]
  - Malaise [Unknown]

NARRATIVE: CASE EVENT DATE: 2014
